FAERS Safety Report 7238908-4 (Version None)
Quarter: 2011Q1

REPORT INFORMATION
  Report Type: 
  Country: None (occurrence: None)
  Receive Date: 20110121
  Receipt Date: 20110107
  Transmission Date: 20110831
  Serious: Yes (Hospitalization)
  Sender: FDA-Public Use
  Company Number: US-SHIRE-SPV1-2010-01893

PATIENT
  Sex: Male
  Weight: 26.757 kg

DRUGS (3)
  1. RITALIN [Concomitant]
     Indication: ATTENTION DEFICIT/HYPERACTIVITY DISORDER
     Dosage: 20 MG, 1X/DAY:QD
     Dates: start: 20050101
  2. ANTIALLERGIC AGENTS, EXCL CORTICOSTEROIDS [Concomitant]
     Indication: MULTIPLE ALLERGIES
     Dosage: UNK
     Route: 048
  3. DAYTRANA [Suspect]
     Indication: ATTENTION DEFICIT/HYPERACTIVITY DISORDER
     Dosage: 30 MG, 1X/DAY:QD
     Dates: start: 20080101

REACTIONS (10)
  - APHASIA [None]
  - FALL [None]
  - UNRESPONSIVE TO STIMULI [None]
  - SKIN DISCOLOURATION [None]
  - OVERDOSE [None]
  - OXYGEN SATURATION DECREASED [None]
  - EYE MOVEMENT DISORDER [None]
  - PRODUCT QUALITY ISSUE [None]
  - MYDRIASIS [None]
  - FEELING ABNORMAL [None]
